FAERS Safety Report 9530836 (Version 1)
Quarter: 2013Q2

REPORT INFORMATION
  Report Type: Spontaneous
  Country: US (occurrence: None)
  Receive Date: 20130418
  Receipt Date: 20130418
  Transmission Date: 20140414
  Serious: Yes (Other)
  Sender: FDA-Public Use
  Company Number: 0909USA03401

PATIENT
  Age: 57 Year
  Sex: Female
  Weight: 95.3 kg

DRUGS (2)
  1. SINGULAIR [Suspect]
     Indication: BRONCHITIS
     Route: 048
     Dates: start: 20090303, end: 20090307
  2. SINGULAIR [Suspect]
     Indication: ASTHMA
     Route: 048
     Dates: start: 20090303, end: 20090307

REACTIONS (3)
  - Abdominal discomfort [None]
  - Diarrhoea [None]
  - Vomiting [None]
